FAERS Safety Report 25314487 (Version 1)
Quarter: 2025Q2

REPORT INFORMATION
  Report Type: Spontaneous
  Country: FR (occurrence: FR)
  Receive Date: 20250514
  Receipt Date: 20250514
  Transmission Date: 20250716
  Serious: Yes (Hospitalization, Other)
  Sender: SANDOZ
  Company Number: None

PATIENT
  Age: 61 Year
  Sex: Female

DRUGS (2)
  1. BROMAZEPAM [Suspect]
     Active Substance: BROMAZEPAM
     Indication: Drug dependence
     Route: 048
     Dates: start: 202501
  2. ZOLPIDEM [Suspect]
     Active Substance: ZOLPIDEM TARTRATE
     Indication: Drug dependence
     Dosage: TAPERING TO 0-0-1, STRENGTH: 10 MG
     Route: 048
     Dates: start: 202501

REACTIONS (12)
  - Loss of consciousness [Unknown]
  - Fall [Unknown]
  - Hypokalaemia [Unknown]
  - Drug use disorder [Unknown]
  - Rhabdomyolysis [Unknown]
  - Stress [Unknown]
  - Normocytic anaemia [Unknown]
  - Leukocytosis [Unknown]
  - Hyponatraemia [Unknown]
  - Malaise [Recovered/Resolved]
  - Hypertension [Unknown]
  - Diarrhoea [Unknown]

NARRATIVE: CASE EVENT DATE: 20250115
